FAERS Safety Report 9138928 (Version 2)
Quarter: 2013Q2

REPORT INFORMATION
  Report Type: Spontaneous
  Country: US (occurrence: US)
  Receive Date: 20130305
  Receipt Date: 20130417
  Transmission Date: 20140414
  Serious: No
  Sender: FDA-Public Use
  Company Number: US-PFIZER INC-2013073445

PATIENT
  Age: 60 Year
  Sex: Female
  Weight: 44.44 kg

DRUGS (1)
  1. CELEBREX [Suspect]
     Indication: LIGAMENT RUPTURE
     Dosage: 200 MG, 2X/DAY
     Dates: start: 20130215, end: 20130227

REACTIONS (3)
  - Rash [Not Recovered/Not Resolved]
  - Erythema [Not Recovered/Not Resolved]
  - Pruritus [Not Recovered/Not Resolved]
